FAERS Safety Report 5248154-1 (Version None)
Quarter: 2007Q1

REPORT INFORMATION
  Report Type: 
  Country: None (occurrence: None)
  Receive Date: 20070227
  Receipt Date: 20060330
  Transmission Date: 20070707
  Serious: No
  Sender: FDA-Public Use
  Company Number: US-BRISTOL-MYERS SQUIBB COMPANY-13332218

PATIENT
  Age: 49 Year
  Sex: Female
  Weight: 91 kg

DRUGS (7)
  1. GLUCOPHAGE [Suspect]
     Indication: DIABETES MELLITUS
     Route: 048
     Dates: start: 20051201
  2. METFORMIN HCL [Concomitant]
  3. LIPITOR [Concomitant]
  4. AVANDIA [Concomitant]
  5. ACCUPRIL [Concomitant]
  6. FLONASE [Concomitant]
  7. ELAVIL [Concomitant]

REACTIONS (1)
  - MOUTH ULCERATION [None]
